FAERS Safety Report 9775746 (Version 1)
Quarter: 2013Q4

REPORT INFORMATION
  Report Type: Spontaneous
  Country: GB (occurrence: GB)
  Receive Date: 20131220
  Receipt Date: 20131220
  Transmission Date: 20140711
  Serious: Yes (Other)
  Sender: FDA-Public Use
  Company Number: GB-TEVA-451401ISR

PATIENT
  Age: 14 Year
  Sex: Male
  Weight: 50 kg

DRUGS (3)
  1. PROPRANOLOL [Suspect]
     Dosage: 40 MILLIGRAM DAILY;
     Route: 048
     Dates: start: 20131121, end: 20131129
  2. PARACETAMOL [Concomitant]
  3. IBUPROFEN [Concomitant]

REACTIONS (1)
  - Loss of consciousness [Recovered/Resolved]
